FAERS Safety Report 5994711-4 (Version None)
Quarter: 2008Q4

REPORT INFORMATION
  Report Type: 
  Country: None (occurrence: None)
  Receive Date: 20081212
  Receipt Date: 20080609
  Transmission Date: 20090506
  Serious: No
  Sender: FDA-Public Use
  Company Number: US-AMGEN-KDL280285

PATIENT
  Sex: Male

DRUGS (23)
  1. ENBREL [Suspect]
     Indication: PSORIATIC ARTHROPATHY
     Route: 058
     Dates: start: 20080516
  2. ENBREL [Suspect]
     Indication: PSORIASIS
  3. CLOBETASOL PROPIONATE [Concomitant]
     Route: 061
  4. FLUOXETINE HYDROCHLORIDE [Concomitant]
     Route: 048
  5. SIMVASTATIN [Concomitant]
     Route: 048
  6. HYDROXYZINE PAMOATE [Concomitant]
     Route: 048
  7. COAL TAR [Concomitant]
  8. VITAMIN B COMPLEX WITH C [Concomitant]
     Route: 048
  9. TRIAMCINOLONE ACETONIDE [Concomitant]
     Route: 061
  10. CALCIPOTRIENE [Concomitant]
     Route: 061
  11. LOSARTAN POTASSIUM [Concomitant]
     Route: 048
  12. GLYBURIDE [Concomitant]
     Route: 048
  13. HYDROCHLOROTHIAZIDE [Concomitant]
  14. TERBINAFINE HCL [Concomitant]
     Route: 061
  15. METFORMIN HYDROCHLORIDE [Concomitant]
     Route: 048
  16. TRAMADOL HYDROCHLORIDE [Concomitant]
     Route: 048
  17. VARDENAFIL HYDROCHLORIDE [Concomitant]
     Route: 048
  18. INSULIN [Concomitant]
     Route: 058
  19. ASPIRIN [Concomitant]
     Route: 048
  20. METOPROLOL TARTRATE [Concomitant]
     Route: 048
  21. HUMULIN 70/30 [Concomitant]
     Route: 058
  22. BETAMETHASONE VALERATE [Concomitant]
     Route: 061
  23. ARTIFICIAL TEARS [Concomitant]

REACTIONS (1)
  - NEPHROLITHIASIS [None]
